FAERS Safety Report 4350294-6 (Version None)
Quarter: 2004Q2

REPORT INFORMATION
  Report Type: 
  Country: None (occurrence: None)
  Receive Date: 20040429
  Receipt Date: 20040416
  Transmission Date: 20050107
  Serious: Yes (Other)
  Sender: FDA-Public Use
  Company Number: GB-MERCK-0404GBR00136

PATIENT
  Sex: Male

DRUGS (3)
  1. [THERAPY UNSPECIFIED] [Concomitant]
     Route: 065
  2. RAMIPRIL [Concomitant]
     Route: 065
  3. ZOCOR [Suspect]
     Route: 048
     Dates: start: 20040405, end: 20040415

REACTIONS (1)
  - ANAPHYLACTIC SHOCK [None]
